FAERS Safety Report 24104079 (Version 1)
Quarter: 2024Q3

REPORT INFORMATION
  Report Type: Report from Study
  Country: RU (occurrence: None)
  Receive Date: 20240717
  Receipt Date: 20240717
  Transmission Date: 20241017
  Serious: Yes (Other)
  Sender: ASTRAZENECA
  Company Number: 2019SF86623

PATIENT
  Age: 74 Year
  Sex: Female
  Weight: 73 kg

DRUGS (10)
  1. BRILINTA [Suspect]
     Active Substance: TICAGRELOR
     Indication: Angina unstable
     Route: 048
     Dates: start: 20190905
  2. BRILINTA [Suspect]
     Active Substance: TICAGRELOR
     Indication: Myocardial ischaemia
     Route: 048
     Dates: start: 20190905
  3. BRILINTA [Suspect]
     Active Substance: TICAGRELOR
     Indication: Stent placement
     Route: 048
     Dates: start: 20190905
  4. ASPIRIN [Concomitant]
     Active Substance: ASPIRIN
  5. ROSUVASTATIN [Concomitant]
     Active Substance: ROSUVASTATIN
  6. LERCANIDIPINE [Concomitant]
     Active Substance: LERCANIDIPINE
  7. MOXONIDINE [Concomitant]
     Active Substance: MOXONIDINE
  8. INSULIN NOS [Concomitant]
     Active Substance: INSULIN NOS
  9. LEVOTHYROXINE SODIUM [Concomitant]
     Active Substance: LEVOTHYROXINE SODIUM
  10. LOSARTAN [Concomitant]
     Active Substance: LOSARTAN

REACTIONS (1)
  - Cardiac myxoma [Not Recovered/Not Resolved]

NARRATIVE: CASE EVENT DATE: 20191125
